FAERS Safety Report 19072373 (Version 5)
Quarter: 2023Q1

REPORT INFORMATION
  Report Type: Report from Study
  Country: CA (occurrence: CA)
  Receive Date: 20210330
  Receipt Date: 20230310
  Transmission Date: 20230418
  Serious: Yes (Other)
  Sender: FDA-Public Use
  Company Number: CA-TAKEDA-2021TUS020114

PATIENT
  Age: 24 Year
  Sex: Female

DRUGS (3)
  1. VEDOLIZUMAB [Suspect]
     Active Substance: VEDOLIZUMAB
     Indication: Crohn^s disease
     Dosage: 300 MILLIGRAM
     Route: 042
     Dates: start: 20210103
  2. VEDOLIZUMAB [Suspect]
     Active Substance: VEDOLIZUMAB
     Dosage: 300 MILLIGRAM, Q4WEEKS
     Route: 042
     Dates: start: 20210412
  3. VEDOLIZUMAB [Suspect]
     Active Substance: VEDOLIZUMAB
     Dosage: 300 MILLIGRAM, Q4WEEKS
     Route: 042

REACTIONS (8)
  - Crohn^s disease [Unknown]
  - Drug ineffective [Recovering/Resolving]
  - Anal fistula [Unknown]
  - Abscess [Unknown]
  - Blood pressure decreased [Unknown]
  - Blood iron abnormal [Unknown]
  - Off label use [Unknown]
  - Chills [Unknown]

NARRATIVE: CASE EVENT DATE: 20210412
